FAERS Safety Report 9460124 (Version 2)
Quarter: 2013Q3

REPORT INFORMATION
  Report Type: Spontaneous
  Country: IT (occurrence: IT)
  Receive Date: 20130815
  Receipt Date: 20130828
  Transmission Date: 20140515
  Serious: Yes (Hospitalization)
  Sender: FDA-Public Use
  Company Number: IT-PFIZER INC-2013236644

PATIENT
  Age: 86 Year
  Sex: Female

DRUGS (9)
  1. TRIATEC [Suspect]
     Indication: HYPERTENSION
     Dosage: 5 MG, DAILY
     Route: 048
     Dates: start: 20130501, end: 20130807
  2. LOSARTAN AND HYDROCHLOROTHIAZIDE [Suspect]
     Dosage: 125 MG, DAILY
     Route: 048
     Dates: start: 20121201, end: 20130808
  3. FUROSEMIDE [Suspect]
     Dosage: 25 MG, DAILY
     Route: 048
     Dates: start: 20110901, end: 20130808
  4. EUTIROX [Concomitant]
     Dosage: UNK
  5. CARDURA [Concomitant]
     Dosage: UNK
  6. ESOMEPRAZOLE [Concomitant]
     Dosage: UNK
  7. AMLODIPINE [Concomitant]
     Dosage: UNK
  8. DIGOXIN [Concomitant]
     Dosage: UNK
  9. SPIRONOLACTONE [Concomitant]
     Dosage: UNK

REACTIONS (3)
  - Hyponatraemia [Recovered/Resolved]
  - Hypotension [Recovered/Resolved]
  - Presyncope [Recovered/Resolved]
